FAERS Safety Report 6274865-5 (Version None)
Quarter: 2009Q3

REPORT INFORMATION
  Report Type: 
  Country: None (occurrence: None)
  Receive Date: 20090721
  Receipt Date: 20090717
  Transmission Date: 20100115
  Serious: Yes (Life-Threatening, Hospitalization, Other)
  Sender: FDA-Public Use
  Company Number: US-BRISTOL-MYERS SQUIBB COMPANY-14657639

PATIENT
  Age: 66 Year
  Sex: Female

DRUGS (7)
  1. ERBITUX [Suspect]
     Indication: COLORECTAL CANCER
     Dosage: INIT:12JAN09:1ST WK:400MG/M2 250MG/M2 WEEKLY 8MAY09 10,1709,25FEB;03,10MAR09 HELD ON 18MAR09
     Route: 042
     Dates: start: 20090522, end: 20090522
  2. CARDIZEM [Suspect]
     Route: 048
     Dates: start: 20090112
  3. IRINOTECAN HCL [Suspect]
     Dosage: 02APR09 10FEB09,25FEB09,10MAR09:240MG 29MAR09 2APR09 HELD ON 16APR09
     Dates: start: 20090210, end: 20090424
  4. INSULIN [Concomitant]
  5. MAGNESIUM SULFATE [Concomitant]
     Dosage: 2MG:17FEB,25FEB,3NAR,10MAR18MAR,29MAR 4MG:2APR,9APR09,16APR,24APR09 8,22MAY2009
     Dates: start: 20090210, end: 20090528
  6. CALCIUM [Concomitant]
  7. BENADRYL [Concomitant]
     Indication: PREMEDICATION
     Dosage: 17FEB,25FEB,3MAR,10MAR,02APR,09APR,16APR,24APR09
     Dates: start: 20090210

REACTIONS (3)
  - BLOOD MAGNESIUM DECREASED [None]
  - BRADYCARDIA [None]
  - CARDIAC ARREST [None]
